FAERS Safety Report 14369346 (Version 1)
Quarter: 2018Q1

REPORT INFORMATION
  Report Type: Spontaneous
  Country: CN (occurrence: CN)
  Receive Date: 20180109
  Receipt Date: 20180109
  Transmission Date: 20180509
  Serious: Yes (Hospitalization)
  Sender: FDA-Public Use
  Company Number: CN-BAXTER-2018BAX000547

PATIENT
  Age: 47 Year
  Sex: Male

DRUGS (2)
  1. 20% MANNITOL INJECTION [Suspect]
     Active Substance: MANNITOL
     Indication: SURGERY
     Route: 041
     Dates: start: 20171105, end: 20171105
  2. 20% MANNITOL INJECTION [Suspect]
     Active Substance: MANNITOL
     Indication: CLAVICLE FRACTURE
     Dosage: DOSE RE-INTRODUCED
     Route: 041

REACTIONS (2)
  - Dyspnoea [Recovering/Resolving]
  - Anaphylactic shock [Recovering/Resolving]

NARRATIVE: CASE EVENT DATE: 20171105
